FAERS Safety Report 6337800-7 (Version None)
Quarter: 2009Q3

REPORT INFORMATION
  Report Type: 
  Country: None (occurrence: None)
  Receive Date: 20090902
  Receipt Date: 20090828
  Transmission Date: 20100115
  Serious: Yes (Hospitalization)
  Sender: FDA-Public Use
  Company Number: A0789730A

PATIENT
  Age: 76 Year
  Sex: Male

DRUGS (13)
  1. ADVAIR HFA [Suspect]
     Indication: DYSPNOEA
     Dosage: 1PUFF TWICE PER DAY
     Route: 055
     Dates: start: 20090301, end: 20090608
  2. CARAFATE [Concomitant]
  3. XALATAN [Concomitant]
  4. AGGRENOX [Concomitant]
  5. LISINOPRIL [Concomitant]
  6. LOPRESSOR [Concomitant]
  7. ZOCOR [Concomitant]
  8. LASIX [Concomitant]
  9. BETAGAN [Concomitant]
  10. ASCORBIC ACID [Concomitant]
  11. FISH OIL [Concomitant]
  12. COD LIVER OIL [Concomitant]
  13. ASPIRIN [Concomitant]

REACTIONS (3)
  - DIPLOPIA [None]
  - HERPES ZOSTER [None]
  - TRANSIENT ISCHAEMIC ATTACK [None]
